FAERS Safety Report 23573183 (Version 1)
Quarter: 2024Q1

REPORT INFORMATION
  Report Type: Report from Study
  Country: DE (occurrence: DE)
  Receive Date: 20240228
  Receipt Date: 20240228
  Transmission Date: 20240409
  Serious: Yes (Hospitalization, Congenital Anomaly)
  Sender: FDA-Public Use
  Company Number: DE-Merck Healthcare KGaA-2024009641

PATIENT
  Age: 59 Year
  Sex: Female
  Weight: 47 kg

DRUGS (8)
  1. REBIF [Suspect]
     Active Substance: INTERFERON BETA-1A
     Indication: Multiple sclerosis
     Route: 058
     Dates: start: 2010
  2. REBIF [Suspect]
     Active Substance: INTERFERON BETA-1A
  3. CORTISONE [Concomitant]
     Active Substance: CORTISONE
     Indication: Product used for unknown indication
     Dosage: UNTIL FRIDAY STILL (AS OF 21-FEB-2024)
  4. CHOLECALCIFEROL [Concomitant]
     Active Substance: CHOLECALCIFEROL
     Indication: Product used for unknown indication
  5. PANTOPRAZOLE [Concomitant]
     Active Substance: PANTOPRAZOLE
     Indication: Product used for unknown indication
  6. LEVOTHYROXINE [Concomitant]
     Active Substance: LEVOTHYROXINE\LEVOTHYROXINE SODIUM
     Indication: Hypothyroidism
  7. CANDESARTAN [Concomitant]
     Active Substance: CANDESARTAN
     Indication: Blood pressure measurement
  8. CANDESARTAN [Concomitant]
     Active Substance: CANDESARTAN

REACTIONS (9)
  - Gastritis [Not Recovered/Not Resolved]
  - Haemangioma congenital [Not Recovered/Not Resolved]
  - Gastrointestinal disorder [Unknown]
  - Stress [Not Recovered/Not Resolved]
  - Multiple sclerosis relapse [Not Recovered/Not Resolved]
  - Laryngeal disorder [Unknown]
  - Feeding disorder [Unknown]
  - Dizziness [Unknown]
  - Incorrect dose administered [Unknown]

NARRATIVE: CASE EVENT DATE: 20240101
